FAERS Safety Report 19810698 (Version 5)
Quarter: 2022Q1

REPORT INFORMATION
  Report Type: Report from Study
  Country: IN (occurrence: IN)
  Receive Date: 20210909
  Receipt Date: 20220311
  Transmission Date: 20220424
  Serious: Yes (Other)
  Sender: FDA-Public Use
  Company Number: IN-002147023-NVSC2021IN196812

PATIENT

DRUGS (4)
  1. RUXOLITINIB [Suspect]
     Active Substance: RUXOLITINIB
     Indication: Primary myelofibrosis
     Dosage: 15 MG, BID
     Route: 065
     Dates: start: 20210805, end: 20211022
  2. RUXOLITINIB [Suspect]
     Active Substance: RUXOLITINIB
     Dosage: 20 MG, BID
     Route: 065
     Dates: start: 20211022, end: 20211224
  3. RUXOLITINIB [Suspect]
     Active Substance: RUXOLITINIB
     Dosage: 25 MG, BID
     Route: 065
     Dates: start: 20211225
  4. HYDROXYUREA [Concomitant]
     Active Substance: HYDROXYUREA
     Indication: Product used for unknown indication
     Dosage: UNK
     Route: 065

REACTIONS (9)
  - Anaemia [Not Recovered/Not Resolved]
  - Dyspnoea exertional [Not Recovered/Not Resolved]
  - Haematemesis [Recovered/Resolved]
  - Melaena [Recovered/Resolved]
  - Diarrhoea [Not Recovered/Not Resolved]
  - Orthopnoea [Not Recovered/Not Resolved]
  - Pancytopenia [Not Recovered/Not Resolved]
  - White blood cell count increased [Not Recovered/Not Resolved]
  - Platelet count increased [Unknown]

NARRATIVE: CASE EVENT DATE: 20210818
